FAERS Safety Report 15023515 (Version 1)
Quarter: 2018Q2

REPORT INFORMATION
  Report Type: Spontaneous
  Country: DE (occurrence: DE)
  Receive Date: 20180618
  Receipt Date: 20180618
  Transmission Date: 20180711
  Serious: Yes (Hospitalization)
  Sender: FDA-Public Use
  Company Number: DE-TEVA-2018-DE-908646

PATIENT
  Age: 76 Year
  Sex: Male

DRUGS (4)
  1. VITAMIN B [Concomitant]
     Active Substance: VITAMIN B
     Dosage: NK MG, NK
     Route: 065
  2. CLINDAMYCIN. [Suspect]
     Active Substance: CLINDAMYCIN
     Dosage: NK
     Route: 065
  3. RAMIPRIL. [Concomitant]
     Active Substance: RAMIPRIL
     Dosage: NK
     Route: 065
  4. PEROCUR [Concomitant]
     Dosage: NK MG, NK
     Route: 065

REACTIONS (3)
  - Vomiting [Unknown]
  - Abdominal pain [Unknown]
  - Diarrhoea [Unknown]
